FAERS Safety Report 24126461 (Version 2)
Quarter: 2024Q3

REPORT INFORMATION
  Report Type: Spontaneous
  Country: LB (occurrence: LB)
  Receive Date: 20240723
  Receipt Date: 20240724
  Transmission Date: 20241017
  Serious: Yes (Other)
  Sender: MERZ
  Company Number: LB-Merz Pharmaceuticals GmbH-2024070000035

PATIENT

DRUGS (1)
  1. XEOMIN [Suspect]
     Active Substance: INCOBOTULINUMTOXINA
     Indication: Product used for unknown indication
     Dosage: 1 032

REACTIONS (2)
  - Necrosis [Unknown]
  - Suspected counterfeit product [Unknown]
